FAERS Safety Report 25362641 (Version 1)
Quarter: 2025Q2

REPORT INFORMATION
  Report Type: Spontaneous
  Country: US (occurrence: US)
  Receive Date: 20250527
  Receipt Date: 20250527
  Transmission Date: 20250717
  Serious: Yes (Other)
  Sender: BAYER HEALTHCARE PHARMACEUTICALS INC.
  Company Number: US-BAYER-2025A068450

PATIENT
  Age: 82 Year
  Sex: Female

DRUGS (12)
  1. ADEMPAS [Suspect]
     Active Substance: RIOCIGUAT
     Indication: Pulmonary hypertension
     Dosage: 2.5 MG, TID
     Route: 048
     Dates: start: 20160913
  2. ROSUVASTATIN CALCIUM [Concomitant]
     Active Substance: ROSUVASTATIN CALCIUM
  3. OMEPRAZOLE [Concomitant]
     Active Substance: OMEPRAZOLE
  4. POTASSIUM CHLORIDE [Concomitant]
     Active Substance: POTASSIUM CHLORIDE
  5. LEVOTHYROXINE [Concomitant]
     Active Substance: LEVOTHYROXINE
  6. ALENDRONATE SODIUM [Concomitant]
     Active Substance: ALENDRONATE SODIUM
  7. ESTRADIOL [Concomitant]
     Active Substance: ESTRADIOL
  8. FUROSEMIDE [Concomitant]
     Active Substance: FUROSEMIDE
  9. PRADAXA [Concomitant]
     Active Substance: DABIGATRAN ETEXILATE MESYLATE
  10. ALLOPURINOL [Concomitant]
     Active Substance: ALLOPURINOL
  11. FAMOTIDINE [Concomitant]
     Active Substance: FAMOTIDINE
  12. OXYGEN [Concomitant]
     Active Substance: OXYGEN

REACTIONS (4)
  - Head injury [None]
  - Fall [None]
  - Haematoma [None]
  - Pain of skin [None]
